FAERS Safety Report 21405494 (Version 1)
Quarter: 2022Q4

REPORT INFORMATION
  Report Type: Spontaneous
  Country: CH (occurrence: CH)
  Receive Date: 20221004
  Receipt Date: 20221004
  Transmission Date: 20230112
  Serious: Yes (Hospitalization)
  Sender: FDA-Public Use
  Company Number: CH-PFIZER INC-PV202200074312

PATIENT
  Sex: Male

DRUGS (1)
  1. VYNDAQEL [Suspect]
     Active Substance: TAFAMIDIS MEGLUMINE
     Dosage: 61 MG, 1X/DAY

REACTIONS (5)
  - Cardiac dysfunction [Unknown]
  - Cardiac failure [Unknown]
  - Drug ineffective [Unknown]
  - Gout [Unknown]
  - Intentional product misuse [Unknown]
